FAERS Safety Report 17639122 (Version 2)
Quarter: 2020Q2

REPORT INFORMATION
  Report Type: Spontaneous
  Country: IT (occurrence: IT)
  Receive Date: 20200407
  Receipt Date: 20200427
  Transmission Date: 20200713
  Serious: Yes (Other)
  Sender: FDA-Public Use
  Company Number: IT-JNJFOC-20200339148

PATIENT
  Age: 26 Year

DRUGS (8)
  1. LURASIDONE [Suspect]
     Active Substance: LURASIDONE
     Indication: PSYCHOTIC DISORDER
     Dosage: UNK
     Route: 065
  2. LURASIDONE [Suspect]
     Active Substance: LURASIDONE
     Route: 065
  3. HALDOL [Suspect]
     Active Substance: HALOPERIDOL
     Route: 065
  4. HALDOL [Suspect]
     Active Substance: HALOPERIDOL
     Route: 065
  5. CARBAMAZEPINE. [Suspect]
     Active Substance: CARBAMAZEPINE
     Indication: PSYCHOTIC DISORDER
     Route: 065
  6. HALDOL [Suspect]
     Active Substance: HALOPERIDOL
     Indication: PSYCHOTIC DISORDER
     Route: 065
  7. OLANZAPINE. [Suspect]
     Active Substance: OLANZAPINE
     Indication: PSYCHOTIC DISORDER
     Route: 065
  8. CARIPRAZINE [Concomitant]
     Active Substance: CARIPRAZINE
     Indication: PRODUCT USED FOR UNKNOWN INDICATION
     Route: 065

REACTIONS (1)
  - Central nervous system lesion [Recovered/Resolved]
